FAERS Safety Report 24241742 (Version 4)
Quarter: 2024Q4

REPORT INFORMATION
  Report Type: Spontaneous
  Country: US (occurrence: US)
  Receive Date: 20240823
  Receipt Date: 20241001
  Transmission Date: 20250114
  Serious: No
  Sender: ROCHE
  Company Number: US-ROCHE-10000062843

PATIENT
  Age: 23 Year
  Sex: Female
  Weight: 88.0 kg

DRUGS (12)
  1. XOLAIR PFS [Suspect]
     Active Substance: OMALIZUMAB
     Indication: Urticaria
     Dosage: TAKES 2- 150 MG SYRINGES EACH TIME
     Route: 058
     Dates: start: 2020
  2. XOLAIR PFS [Suspect]
     Active Substance: OMALIZUMAB
     Indication: Asthma
     Route: 065
  3. XOLAIR PFS [Suspect]
     Active Substance: OMALIZUMAB
     Route: 058
  4. SINGULAIR [Concomitant]
     Active Substance: MONTELUKAST SODIUM
     Indication: Asthma
     Dosage: TAKES AT NIGHT; STARTED BEFORE XOLAIR
     Route: 048
  5. SINGULAIR [Concomitant]
     Active Substance: MONTELUKAST SODIUM
     Indication: Hypersensitivity
  6. SYMBICORT [Concomitant]
     Active Substance: BUDESONIDE\FORMOTEROL FUMARATE DIHYDRATE
     Indication: Asthma
     Dosage: 1 PUFF DAILY: STARTED BEFORE XOLAIR (INHALER)
     Route: 048
  7. CETIRIZINE HYDROCHLORIDE [Concomitant]
     Active Substance: CETIRIZINE HYDROCHLORIDE
     Indication: Hypersensitivity
     Dosage: TAKES AT NIGHT; STARTED BEFORE XOLAIR
     Route: 048
  8. ALLEGRA ALLERGY [Concomitant]
     Active Substance: FEXOFENADINE HYDROCHLORIDE
     Indication: Hypersensitivity
     Dosage: TAKES IN THE MORNING; STARTED BEFORE XOLAIR
     Route: 048
  9. VITAMIN D [Concomitant]
     Active Substance: VITAMIN D NOS
     Indication: Vitamin D decreased
     Route: 048
  10. VITAMINS [Concomitant]
     Active Substance: VITAMINS
     Indication: Vitamin A decreased
     Dosage: STARTED AFTER XOLAIR , (ORAL GUMMY)
     Route: 048
  11. VITAMINS [Concomitant]
     Active Substance: VITAMINS
     Indication: Vitamin E decreased
  12. Shampoo for dandruff [Concomitant]
     Indication: Dandruff
     Dosage: USES IT EACH TIME SHE WASHES HER HAIR (LIQUID)
     Route: 061

REACTIONS (10)
  - Wrong technique in product usage process [Unknown]
  - Vitamin D decreased [Unknown]
  - Irritable bowel syndrome [Not Recovered/Not Resolved]
  - Hypermobility syndrome [Not Recovered/Not Resolved]
  - Vitamin A decreased [Unknown]
  - Dandruff [Unknown]
  - Circumstance or information capable of leading to device use error [Unknown]
  - Wrong technique in product usage process [Unknown]
  - Accidental underdose [Unknown]
  - Device defective [Unknown]

NARRATIVE: CASE EVENT DATE: 20240101
